FAERS Safety Report 7970003-9 (Version None)
Quarter: 2011Q4

REPORT INFORMATION
  Report Type: 
  Country: None (occurrence: None)
  Receive Date: 20111212
  Receipt Date: 20111130
  Transmission Date: 20120403
  Serious: Yes (Hospitalization, Other)
  Sender: FDA-Public Use
  Company Number: TR-US-EMD SERONO, INC.-7099182

PATIENT
  Age: 48 Year
  Sex: Female
  Weight: 68 kg

DRUGS (6)
  1. REBIF [Suspect]
     Route: 058
     Dates: start: 20110301, end: 20111026
  2. UNSPECIFIED ASTHMA DRUG MEDICATION [Concomitant]
     Indication: ASTHMA
  3. UNSPECIFIED ASTHMA DRUG MEDICATION [Concomitant]
     Indication: SEASONAL ALLERGY
  4. REBIF [Suspect]
     Indication: MULTIPLE SCLEROSIS
     Route: 058
     Dates: start: 20060201, end: 20110301
  5. ACETAMINOPHEN [Concomitant]
     Indication: PAIN
     Route: 048
     Dates: start: 20060201, end: 20111001
  6. ACETAMINOPHEN [Concomitant]
     Indication: PROPHYLAXIS

REACTIONS (5)
  - NECK MASS [None]
  - INFLUENZA [None]
  - DYSPNOEA [None]
  - ASTHENIA [None]
  - CARDIAC ARREST [None]
